FAERS Safety Report 9770024 (Version 1)
Quarter: 2013Q4

REPORT INFORMATION
  Report Type: Spontaneous
  Country: US (occurrence: US)
  Receive Date: 20131218
  Receipt Date: 20131218
  Transmission Date: 20140711
  Serious: No
  Sender: FDA-Public Use
  Company Number: US-VERTEX PHARMACEUTICALS INC-AE-2011-000886

PATIENT
  Sex: 0

DRUGS (7)
  1. INCIVEK [Suspect]
     Indication: HEPATITIS C
     Dates: start: 20110704
  2. RIBAVIRIN [Concomitant]
     Indication: HEPATITIS C
     Dates: start: 20110704
  3. PEGASYS [Concomitant]
     Indication: HEPATITIS C
     Dates: start: 20110704
  4. HYDROCORTISONE CREAM [Concomitant]
     Indication: RASH PRURITIC
     Route: 061
     Dates: start: 20110725
  5. HYDROXYZINE [Concomitant]
     Indication: RASH PRURITIC
     Route: 048
     Dates: start: 20110725
  6. PRISTIQ [Concomitant]
     Indication: DEPRESSION
     Dates: start: 20110813
  7. VITAMINS AND SUPPLEMENTS [Concomitant]
     Indication: VITAMIN SUPPLEMENTATION

REACTIONS (3)
  - Anxiety [Unknown]
  - Insomnia [Unknown]
  - Rash pruritic [Not Recovered/Not Resolved]
